FAERS Safety Report 9408059 (Version 3)
Quarter: 2013Q3

REPORT INFORMATION
  Report Type: Report from Study
  Country: US (occurrence: US)
  Receive Date: 20130718
  Receipt Date: 20130821
  Transmission Date: 20140515
  Serious: Yes (Hospitalization)
  Sender: FDA-Public Use
  Company Number: US-ABBOTT-13P-163-1101032-00

PATIENT
  Age: 18 Year
  Sex: Female

DRUGS (4)
  1. CREON [Suspect]
     Indication: PANCREATIC INSUFFICIENCY
     Dosage: 5 CASULES WITH MEALS AND 4 WITH SNACKS
     Route: 048
     Dates: start: 199307
  2. CREON [Suspect]
     Indication: CYSTIC FIBROSIS
  3. UNKNOWN MEDICATION [Suspect]
     Indication: ASPERGILLUS INFECTION
  4. INSULIN [Concomitant]
     Indication: DIABETES MELLITUS

REACTIONS (10)
  - Coccidioidomycosis [Recovered/Resolved]
  - Lung infection pseudomonal [Unknown]
  - Lung infection pseudomonal [Unknown]
  - Lung infection pseudomonal [Unknown]
  - Lung infection pseudomonal [Recovered/Resolved]
  - Bronchopulmonary aspergillosis [Unknown]
  - Bronchopulmonary aspergillosis [Unknown]
  - Bronchopulmonary aspergillosis [Unknown]
  - Dyspnoea [Not Recovered/Not Resolved]
  - Lung transplant [Recovering/Resolving]
